FAERS Safety Report 9419804 (Version 1)
Quarter: 2013Q3

REPORT INFORMATION
  Report Type: Spontaneous
  Country: US (occurrence: US)
  Receive Date: 20130725
  Receipt Date: 20130725
  Transmission Date: 20140515
  Serious: Yes (Death)
  Sender: FDA-Public Use
  Company Number: US-B.I. PHARMACEUTICALS,INC./RIDGEFIELD-2013-BI-21682BP

PATIENT
  Age: 84 Year
  Sex: Male

DRUGS (4)
  1. PRADAXA [Suspect]
     Dosage: 300 MG
     Route: 048
     Dates: start: 201208
  2. SIMVASTATIN [Concomitant]
  3. LISINOPRIL [Concomitant]
  4. METOPROLOL [Concomitant]

REACTIONS (1)
  - Death [Fatal]
